FAERS Safety Report 24802897 (Version 2)
Quarter: 2025Q1

REPORT INFORMATION
  Report Type: Spontaneous
  Country: GB (occurrence: GB)
  Receive Date: 20250103
  Receipt Date: 20250114
  Transmission Date: 20250409
  Serious: Yes (Death, Hospitalization, Disabling, Other)
  Sender: JOHNSON AND JOHNSON
  Company Number: None

PATIENT
  Age: 53 Year
  Sex: Female
  Weight: 60 kg

DRUGS (2)
  1. REMICADE [Suspect]
     Active Substance: INFLIXIMAB
     Indication: Crohn^s disease
     Route: 041
     Dates: start: 20240313, end: 20240815
  2. budesonide 9mg once daily [Concomitant]
     Indication: Product used for unknown indication

REACTIONS (3)
  - Acute hepatic failure [Fatal]
  - Hepatitis [Not Recovered/Not Resolved]
  - Liver function test abnormal [Unknown]

NARRATIVE: CASE EVENT DATE: 20240502
